FAERS Safety Report 10503224 (Version 1)
Quarter: 2014Q4

REPORT INFORMATION
  Report Type: Spontaneous
  Country: TW (occurrence: TW)
  Receive Date: 20141008
  Receipt Date: 20141008
  Transmission Date: 20150528
  Serious: Yes (Death)
  Sender: FDA-Public Use
  Company Number: TW-ROCHE-1470092

PATIENT
  Age: 79 Year
  Sex: Female

DRUGS (2)
  1. LUCENTIS [Suspect]
     Active Substance: RANIBIZUMAB
     Route: 050
     Dates: start: 20140715, end: 20140715
  2. LUCENTIS [Suspect]
     Active Substance: RANIBIZUMAB
     Indication: AGE-RELATED MACULAR DEGENERATION
     Route: 050
     Dates: start: 201405

REACTIONS (3)
  - Vomiting [Unknown]
  - Death [Fatal]
  - Discomfort [Unknown]

NARRATIVE: CASE EVENT DATE: 20140715
